FAERS Safety Report 5631908-7 (Version None)
Quarter: 2008Q1

REPORT INFORMATION
  Report Type: 
  Country: None (occurrence: None)
  Receive Date: 20080220
  Receipt Date: 20080208
  Transmission Date: 20080703
  Serious: Yes (Disabling)
  Sender: FDA-Public Use
  Company Number: GB-AMGEN-US261297

PATIENT
  Sex: Female

DRUGS (10)
  1. ENBREL [Suspect]
     Indication: RHEUMATOID ARTHRITIS
     Route: 058
     Dates: start: 20071127
  2. CO-CODAMOL [Concomitant]
     Dosage: UNKNOWN
     Route: 065
  3. AMLODIPINE [Concomitant]
     Dosage: UNKNOWN
     Route: 065
  4. ZOTON [Concomitant]
     Dosage: UNKNOWN
     Route: 065
  5. BENDROFLUAZIDE [Concomitant]
     Dosage: UNKNOWN
  6. DOXAZOSIN [Concomitant]
     Dosage: UNKNOWN
     Route: 065
  7. IRBESARTAN [Concomitant]
     Dosage: UNKNOWN
     Route: 065
  8. LEVOTHYROXINE SODIUM [Concomitant]
     Dosage: UNKNOWN
     Route: 065
  9. DICLOFENAC SODIUM [Concomitant]
     Dosage: UNKNOWN
     Route: 065
  10. ATORVASTATIN CALCIUM [Concomitant]
     Dosage: UNKNOWN
     Route: 065

REACTIONS (1)
  - VISUAL ACUITY REDUCED [None]
